FAERS Safety Report 8186671-5 (Version None)
Quarter: 2012Q1

REPORT INFORMATION
  Report Type: 
  Country: None (occurrence: None)
  Receive Date: 20120306
  Receipt Date: 20120221
  Transmission Date: 20120608
  Serious: Yes (Hospitalization)
  Sender: FDA-Public Use
  Company Number: FR-SANOFI-AVENTIS-2012SA011188

PATIENT
  Age: 30 Year
  Sex: Male

DRUGS (5)
  1. AMARYL [Suspect]
     Dosage: DOSE:1 UNIT(S)
     Route: 048
     Dates: start: 20111224
  2. CRESTOR [Suspect]
     Route: 048
     Dates: end: 20111224
  3. JANUVIA [Suspect]
     Dosage: DOSE:1 UNIT(S)
     Route: 048
     Dates: end: 20111224
  4. METFORMIN HCL [Suspect]
     Route: 048
     Dates: end: 20111224
  5. PERINDOPRIL ERBUMINE [Suspect]
     Route: 048
     Dates: end: 20120110

REACTIONS (1)
  - PANCREATITIS [None]
